FAERS Safety Report 7627478-4 (Version None)
Quarter: 2011Q3

REPORT INFORMATION
  Report Type: 
  Country: None (occurrence: None)
  Receive Date: 20110721
  Receipt Date: 20110713
  Transmission Date: 20111222
  Serious: Yes (Other)
  Sender: FDA-Public Use
  Company Number: US-ELI_LILLY_AND_COMPANY-US201001003863

PATIENT
  Sex: Male
  Weight: 89.796 kg

DRUGS (10)
  1. BYETTA [Suspect]
     Dosage: 5 UG, EACH MORNING
  2. LIPITOR [Concomitant]
     Indication: BLOOD CHOLESTEROL
  3. NEURONTIN [Concomitant]
     Dosage: 300 MG, QD
     Route: 048
  4. INSULIN [Concomitant]
     Indication: DIABETES MELLITUS
  5. BYETTA [Suspect]
     Dosage: 10 UG, EACH EVENING
  6. BYETTA [Suspect]
     Dosage: 5 UG, BID
     Dates: start: 20070302
  7. BACLOFEN [Concomitant]
     Dosage: 10 MG, BID
     Route: 048
  8. PREVACID [Concomitant]
     Dosage: 30 MG, QD
  9. BYETTA [Suspect]
     Dosage: 10 UG, BID
     Dates: end: 20080103
  10. LISINOPRIL [Concomitant]
     Dosage: 20 MG, QD
     Route: 048

REACTIONS (6)
  - PANCREATITIS CHRONIC [None]
  - INTENTIONAL DRUG MISUSE [None]
  - PANCREATIC DISORDER [None]
  - PANCREATITIS ACUTE [None]
  - PAIN [None]
  - OFF LABEL USE [None]
